FAERS Safety Report 14694795 (Version 2)
Quarter: 2018Q2

REPORT INFORMATION
  Report Type: Spontaneous
  Country: AR (occurrence: AR)
  Receive Date: 20180329
  Receipt Date: 20180416
  Transmission Date: 20180711
  Serious: Yes (Other)
  Sender: FDA-Public Use
  Company Number: AR-009507513-1803ARG012459

PATIENT
  Age: 40 Year
  Sex: Female

DRUGS (2)
  1. JANUVIA [Suspect]
     Active Substance: SITAGLIPTIN PHOSPHATE
     Dosage: UNK
     Route: 048
     Dates: start: 201704, end: 201803
  2. GLIPIZIDE. [Concomitant]
     Active Substance: GLIPIZIDE
     Dates: end: 201803

REACTIONS (1)
  - Exposure during pregnancy [Not Recovered/Not Resolved]
